FAERS Safety Report 14957709 (Version 1)
Quarter: 2018Q2

REPORT INFORMATION
  Report Type: Spontaneous
  Country: US (occurrence: US)
  Receive Date: 20180531
  Receipt Date: 20180531
  Transmission Date: 20180711
  Serious: No
  Sender: FDA-Public Use
  Company Number: US-ARBOR PHARMACEUTICALS, LLC-US-2018ARB000275

PATIENT
  Sex: Female

DRUGS (1)
  1. HORIZANT [Suspect]
     Active Substance: GABAPENTIN ENACARBIL
     Indication: NERVE INJURY
     Dosage: UNK

REACTIONS (3)
  - Bladder disorder [Recovered/Resolved]
  - Dyspnoea [Recovered/Resolved]
  - Drug effective for unapproved indication [Unknown]
